FAERS Safety Report 5709542-X (Version None)
Quarter: 2008Q2

REPORT INFORMATION
  Report Type: 
  Country: None (occurrence: None)
  Receive Date: 20080418
  Receipt Date: 20080414
  Transmission Date: 20081010
  Serious: Yes (Hospitalization)
  Sender: FDA-Public Use
  Company Number: US-MERCK-0804USA03106

PATIENT
  Age: 58 Year
  Sex: Female

DRUGS (6)
  1. FOSAMAX [Suspect]
     Indication: OSTEOPENIA
     Route: 048
     Dates: start: 20030101, end: 20070901
  2. PLAVIX [Concomitant]
     Route: 065
  3. DIOVAN [Concomitant]
     Route: 065
  4. NEXIUM [Concomitant]
     Route: 065
  5. LIPITOR [Concomitant]
     Route: 065
  6. PIROXICAM [Concomitant]
     Route: 065

REACTIONS (1)
  - FEMUR FRACTURE [None]
